FAERS Safety Report 20873159 (Version 2)
Quarter: 2022Q2

REPORT INFORMATION
  Report Type: Report from Study
  Country: CA (occurrence: CA)
  Receive Date: 20220525
  Receipt Date: 20220627
  Transmission Date: 20220721
  Serious: Yes (Hospitalization, Other)
  Sender: FDA-Public Use
  Company Number: CA-BRISTOL-MYERS SQUIBB COMPANY-2022-030134

PATIENT
  Sex: Female
  Weight: 62 kg

DRUGS (1)
  1. APIXABAN [Suspect]
     Active Substance: APIXABAN
     Indication: Embolism venous
     Route: 048
     Dates: start: 20211020, end: 20220404

REACTIONS (2)
  - Urosepsis [Recovered/Resolved with Sequelae]
  - Haematuria [Recovered/Resolved]

NARRATIVE: CASE EVENT DATE: 20220215
